FAERS Safety Report 7177847-4 (Version None)
Quarter: 2010Q4

REPORT INFORMATION
  Report Type: 
  Country: None (occurrence: None)
  Receive Date: 20101220
  Receipt Date: 20101209
  Transmission Date: 20110411
  Serious: Yes (Other)
  Sender: FDA-Public Use
  Company Number: GXKR2010AT14006

PATIENT
  Age: 67 Year
  Sex: Male

DRUGS (3)
  1. LAMOTRIGINE [Suspect]
     Indication: EPILEPSY
     Dosage: 100 MG/DAY
     Route: 065
  2. LAMOTRIGINE [Suspect]
     Dosage: 200 MG/DAY
     Route: 065
  3. LAMOTRIGINE [Suspect]
     Dosage: 300 MG/DAY AFTER TWO WEEKS
     Route: 065

REACTIONS (7)
  - ASTHENIA [None]
  - CARDIOMYOPATHY [None]
  - CHEST PAIN [None]
  - DIZZINESS [None]
  - DYSPNOEA EXERTIONAL [None]
  - IMPLANTABLE DEFIBRILLATOR INSERTION [None]
  - METABOLIC MYOPATHY [None]
